FAERS Safety Report 10021899 (Version 2)
Quarter: 2014Q1

REPORT INFORMATION
  Report Type: Spontaneous
  Country: US (occurrence: US)
  Receive Date: 20140319
  Receipt Date: 20140319
  Transmission Date: 20141002
  Serious: Yes (Life-Threatening, Hospitalization)
  Sender: FDA-Public Use
  Company Number: US-MYLANLABS-2013S1021093

PATIENT
  Age: 53 Year
  Sex: Female
  Weight: 113.4 kg

DRUGS (11)
  1. BENAZEPRIL HYDROCHLORIDE AND HYDROCHLOROTHIAZIDE [Suspect]
     Indication: HYPERTENSION
     Dosage: 10/12.5MG
     Route: 048
     Dates: end: 20130907
  2. BENAZEPRIL HYDROCHLORIDE AND HYDROCHLOROTHIAZIDE [Suspect]
     Indication: FLUID RETENTION
     Dosage: 10/12.5MG
     Route: 048
     Dates: end: 20130907
  3. ZYRTEC [Concomitant]
     Route: 048
  4. FUROSEMIDE [Concomitant]
     Route: 048
  5. FAMOTIDINE [Concomitant]
     Route: 048
  6. AMLODIPINE [Concomitant]
     Route: 048
  7. POTASSIUM CHLORIDE [Concomitant]
     Route: 048
  8. ALPRAZOLAM [Concomitant]
     Indication: ANXIETY
     Route: 048
  9. ESCITALOPRAM [Concomitant]
     Route: 048
  10. ROSUVASTATIN [Concomitant]
     Route: 048
  11. ASPIRIN (E.C.) [Concomitant]
     Route: 048

REACTIONS (4)
  - Angioedema [Recovered/Resolved]
  - Hypersensitivity [Recovered/Resolved]
  - Pneumonia [Recovered/Resolved]
  - Infection [Recovered/Resolved]
